FAERS Safety Report 21186706 (Version 1)
Quarter: 2022Q3

REPORT INFORMATION
  Report Type: Spontaneous
  Country: DE (occurrence: DE)
  Receive Date: 20220808
  Receipt Date: 20220808
  Transmission Date: 20221027
  Serious: Yes (Death, Hospitalization)
  Sender: FDA-Public Use
  Company Number: DE-NOVARTISPH-NVSC2022DE115905

PATIENT
  Age: 69 Year
  Sex: Female
  Weight: 80 kg

DRUGS (5)
  1. PEMETREXED [Suspect]
     Active Substance: PEMETREXED
     Indication: Non-small cell lung cancer
     Dosage: 950 MG, EVERY 21 DAYS, 8 CYCLES
     Route: 042
     Dates: start: 20210709, end: 20211202
  2. DEXAMETHASONE [Concomitant]
     Active Substance: DEXAMETHASONE
     Indication: Product used for unknown indication
     Dosage: 4 MG, CYCLIC, (4 MG, ONCE PER CYCLE)
     Route: 042
     Dates: start: 20210708, end: 20220111
  3. FOLIC ACID [Concomitant]
     Active Substance: FOLIC ACID
     Indication: Product used for unknown indication
     Dosage: UNK UNK, DAILY
     Route: 065
     Dates: start: 20220113, end: 202202
  4. PEMBROLIZUMAB [Concomitant]
     Active Substance: PEMBROLIZUMAB
     Indication: Non-small cell lung cancer
     Dosage: 200 MG, EVERY 21 DAYS, 10 CYCLES
     Route: 065
     Dates: start: 20210709, end: 20220113
  5. AKYNZEO [Concomitant]
     Indication: Product used for unknown indication
     Dosage: 300 MG, CYCLIC, (ONCE PER CYCLE)
     Route: 042
     Dates: start: 20210708, end: 20220111

REACTIONS (1)
  - Cyanosis [Fatal]

NARRATIVE: CASE EVENT DATE: 20220208
